FAERS Safety Report 10871828 (Version 1)
Quarter: 2015Q1

REPORT INFORMATION
  Report Type: Spontaneous
  Country: US (occurrence: None)
  Receive Date: 20150223
  Receipt Date: 20150223
  Transmission Date: 20150721
  Serious: Yes (Life-Threatening, Disabling, Other)
  Sender: FDA-Public Use
  Company Number: None

PATIENT
  Age: 31 Year
  Sex: Male
  Weight: 115.67 kg

DRUGS (3)
  1. ZUBSOLV [Suspect]
     Active Substance: BUPRENORPHINE HYDROCHLORIDE\NALOXONE HYDROCHLORIDE
     Indication: DRUG DEPENDENCE
     Dosage: 3 PILLS ONCE DAILY TAKEN UNDER THE TONGUE
     Route: 060
     Dates: start: 20150117, end: 20150119
  2. TESTOSTERONE. [Concomitant]
     Active Substance: TESTOSTERONE
  3. LEVOTYROXINE [Concomitant]

REACTIONS (5)
  - Hyperhidrosis [None]
  - Cold sweat [None]
  - Nausea [None]
  - Tachycardia [None]
  - Hypertension [None]

NARRATIVE: CASE EVENT DATE: 20150120
